FAERS Safety Report 7372947-8 (Version None)
Quarter: 2011Q1

REPORT INFORMATION
  Report Type: 
  Country: None (occurrence: None)
  Receive Date: 20110324
  Receipt Date: 20110323
  Transmission Date: 20110831
  Serious: Yes (Life-Threatening, Hospitalization, Other)
  Sender: FDA-Public Use
  Company Number: CA-BAYER-2011-025387

PATIENT
  Age: 40 Year
  Sex: Female

DRUGS (2)
  1. YAZ [Suspect]
     Indication: CONTRACEPTION
  2. YAZ [Suspect]
     Indication: UTERINE HAEMORRHAGE

REACTIONS (4)
  - HEADACHE [None]
  - NAUSEA [None]
  - CEREBRAL THROMBOSIS [None]
  - VOMITING [None]
